FAERS Safety Report 9801710 (Version 1)
Quarter: 2014Q1

REPORT INFORMATION
  Report Type: Report from Study
  Country: US (occurrence: US)
  Receive Date: 20140107
  Receipt Date: 20140107
  Transmission Date: 20141002
  Serious: Yes (Hospitalization)
  Sender: FDA-Public Use
  Company Number: US-JNJFOC-20140102182

PATIENT
  Sex: Female
  Weight: 81.65 kg

DRUGS (9)
  1. REMICADE [Suspect]
     Indication: PSORIATIC ARTHROPATHY
     Dosage: INITIATED ABOUT 3 YEARS PRIOR TO THE DATE OF THIS REPORT.
     Route: 042
  2. FENTANYL [Suspect]
     Indication: PAIN IN EXTREMITY
     Route: 062
     Dates: start: 2007, end: 201207
  3. ENBREL [Suspect]
     Indication: PSORIATIC ARTHROPATHY
     Route: 065
  4. HUMIRA [Suspect]
     Indication: PSORIATIC ARTHROPATHY
     Route: 065
  5. OXYCODONE [Suspect]
     Indication: PAIN MANAGEMENT
     Route: 065
     Dates: end: 2012
  6. AMBIEN [Suspect]
     Indication: PAIN MANAGEMENT
     Route: 065
     Dates: end: 2012
  7. EFFEXOR [Suspect]
     Indication: PAIN MANAGEMENT
     Route: 065
     Dates: end: 2012
  8. AMITRIPTYLINE [Suspect]
     Indication: PAIN MANAGEMENT
     Route: 065
     Dates: end: 2012
  9. METHOTREXATE [Concomitant]
     Indication: PSORIATIC ARTHROPATHY
     Route: 065

REACTIONS (4)
  - Osteomyelitis [Unknown]
  - Cerebrovascular accident [Recovered/Resolved]
  - Cataract [Not Recovered/Not Resolved]
  - Nasopharyngitis [Not Recovered/Not Resolved]
